FAERS Safety Report 18449304 (Version 1)
Quarter: 2020Q4

REPORT INFORMATION
  Report Type: Spontaneous
  Country: US (occurrence: US)
  Receive Date: 20201031
  Receipt Date: 20201031
  Transmission Date: 20210114
  Serious: Yes (Other)
  Sender: FDA-Public Use
  Company Number: US-PURDUE PHARMA-USA-2020-0151895

PATIENT
  Age: 39 Year
  Sex: Female

DRUGS (1)
  1. OXYCODONE HYDROCHLORIDE (SIMILAR TO NDA 22-272) [Suspect]
     Active Substance: OXYCODONE HYDROCHLORIDE
     Indication: PRODUCT USED FOR UNKNOWN INDICATION
     Dosage: 4X 15 MG, UNK
     Route: 048
     Dates: start: 20190524

REACTIONS (2)
  - Drug abuse [Unknown]
  - Somnolence [Unknown]

NARRATIVE: CASE EVENT DATE: 20190524
